FAERS Safety Report 7658808-5 (Version None)
Quarter: 2011Q3

REPORT INFORMATION
  Report Type: 
  Country: None (occurrence: None)
  Receive Date: 20110805
  Receipt Date: 20110727
  Transmission Date: 20111222
  Serious: Yes (Other)
  Sender: FDA-Public Use
  Company Number: CA-JNJFOC-20110503522

PATIENT
  Sex: Female
  Weight: 72 kg

DRUGS (3)
  1. AZATHIOPRINE [Concomitant]
  2. MESALAMINE [Concomitant]
  3. REMICADE [Suspect]
     Indication: COLITIS ULCERATIVE
     Route: 042

REACTIONS (2)
  - PRESYNCOPE [None]
  - SYNCOPE [None]
